FAERS Safety Report 9138615 (Version 2)
Quarter: 2013Q2

REPORT INFORMATION
  Report Type: Spontaneous
  Country: US (occurrence: US)
  Receive Date: 20130305
  Receipt Date: 20130516
  Transmission Date: 20140414
  Serious: Yes (Hospitalization)
  Sender: FDA-Public Use
  Company Number: US-SANOFI-AVENTIS-2013SA021047

PATIENT
  Age: 58 Year
  Sex: Female
  Weight: 104 kg

DRUGS (18)
  1. DIABETA [Suspect]
     Indication: TYPE 2 DIABETES MELLITUS
     Route: 065
  2. CORTICOSTEROID NOS [Suspect]
     Indication: RESPIRATORY DISORDER
     Route: 065
  3. METFORMIN [Concomitant]
  4. ATENOLOL [Concomitant]
  5. GLIMEPIRIDE [Concomitant]
     Dates: end: 20121109
  6. ASPIRIN [Concomitant]
  7. LISINOPRIL W/HYDROCHLOROTHIAZIDE [Concomitant]
     Dates: end: 20111219
  8. ALBUTEROL [Concomitant]
  9. CLONAZEPAM [Concomitant]
  10. SIMVASTATIN [Concomitant]
  11. LEVOTHYROZINE [Concomitant]
  12. EVOXAC [Concomitant]
  13. HYDROCODONE W/APAP [Concomitant]
     Indication: PAIN
     Dosage: DOSE-10-325
  14. CYCLOBENZAPRINE [Concomitant]
  15. LYRICA [Concomitant]
  16. VICTOZA [Concomitant]
     Dates: end: 20111219
  17. LEVEMIR [Concomitant]
     Dosage: DOSE:65 UNIT(S)
     Dates: start: 20111219
  18. IPRATROPIUM BROMIDE [Concomitant]

REACTIONS (2)
  - Respiratory disorder [Unknown]
  - Blood glucose increased [Unknown]
